FAERS Safety Report 9269165 (Version 1)
Quarter: 2013Q2

REPORT INFORMATION
  Report Type: Spontaneous
  Country: FR (occurrence: FR)
  Receive Date: 20130503
  Receipt Date: 20130503
  Transmission Date: 20140414
  Serious: Yes (Other)
  Sender: FDA-Public Use
  Company Number: FR-ROCHE-1220786

PATIENT
  Age: 75 Year
  Sex: Female

DRUGS (6)
  1. ROCEPHINE [Suspect]
     Indication: URINARY TRACT INFECTION
     Route: 041
     Dates: start: 20130328, end: 20130401
  2. PREVISCAN (FRANCE) [Interacting]
     Indication: PHLEBITIS
     Route: 048
     Dates: start: 20130330, end: 20130401
  3. PREVISCAN (FRANCE) [Interacting]
     Dosage: 1/4 OF TABLET
     Route: 048
  4. PREVISCAN (FRANCE) [Interacting]
     Route: 048
     Dates: start: 20130403
  5. LOW MOLECULAR WEIGHT HEPARIN [Concomitant]
     Dosage: CURATIVE DOSE
     Route: 065
     Dates: end: 20130330
  6. OROKEN [Concomitant]

REACTIONS (2)
  - International normalised ratio increased [Recovered/Resolved]
  - Drug interaction [Unknown]
